FAERS Safety Report 4410035-0 (Version None)
Quarter: 2004Q3

REPORT INFORMATION
  Report Type: 
  Country: None (occurrence: None)
  Receive Date: 20040728
  Receipt Date: 20040423
  Transmission Date: 20050211
  Serious: Yes (Hospitalization, Disabling)
  Sender: FDA-Public Use
  Company Number: PHBS2004JP05550

PATIENT
  Age: 25 Year
  Sex: Male
  Weight: 63 kg

DRUGS (15)
  1. VOLTAREN [Suspect]
     Indication: PAIN
     Dosage: 100 MG/DAY
     Route: 054
     Dates: start: 20030515, end: 20030602
  2. LENDORM [Concomitant]
     Indication: INSOMNIA
     Route: 048
     Dates: start: 20030518, end: 20030604
  3. LEPETAN [Concomitant]
     Indication: PAIN
     Dosage: 0.2 MG/DAY
     Route: 054
     Dates: start: 20030518, end: 20030603
  4. FARMORUBICIN [Suspect]
     Indication: HEPATIC NEOPLASM
     Dosage: 50 MG/DAY
     Route: 013
     Dates: start: 20030514, end: 20030514
  5. GASTER [Suspect]
     Indication: PROPHYLAXIS AGAINST GASTROINTESTINAL ULCER
     Dosage: 20 MG/DAY
     Route: 048
     Dates: start: 20030517, end: 20030605
  6. CEFOTIAM HYDROCHLORIDE [Suspect]
     Dosage: 2 G/DAY
     Route: 042
     Dates: start: 20030519, end: 20030530
  7. LIPIODOL [Suspect]
     Indication: HEPATIC NEOPLASM
     Dosage: 10 ML/DAY
     Route: 013
     Dates: start: 20030514, end: 20030514
  8. SPONGEL [Suspect]
     Indication: HEPATIC NEOPLASM
     Route: 013
     Dates: start: 20030514, end: 20030514
  9. BOSMIN [Concomitant]
     Dosage: 2 MG/DAY
     Route: 013
     Dates: start: 20030514, end: 20030514
  10. NEO-MINOPHAGEN C [Concomitant]
     Dosage: 40 ML/DAY
     Route: 042
     Dates: start: 20030516, end: 20030605
  11. TATHION [Concomitant]
     Dosage: 100 MG/DAY
     Route: 042
     Dates: start: 20030516, end: 20030605
  12. IOPAMIDOL [Concomitant]
     Indication: ANGIOGRAM
     Dosage: 200 ML/DAY
     Route: 013
     Dates: start: 20030515
  13. IOHEXOL [Concomitant]
     Dates: start: 20030514, end: 20030523
  14. MAGNEVIST [Concomitant]
     Dates: start: 20030515
  15. DEPAS [Suspect]

REACTIONS (7)
  - ASPARTATE AMINOTRANSFERASE INCREASED [None]
  - ASTHENIA [None]
  - BLOOD CREATINE PHOSPHOKINASE INCREASED [None]
  - METASTASIS [None]
  - NUCLEAR MAGNETIC RESONANCE IMAGING ABNORMAL [None]
  - PAIN EXACERBATED [None]
  - RHABDOMYOLYSIS [None]
